FAERS Safety Report 18887488 (Version 1)
Quarter: 2021Q1

REPORT INFORMATION
  Report Type: Spontaneous
  Country: DE (occurrence: DE)
  Receive Date: 20210212
  Receipt Date: 20210212
  Transmission Date: 20210420
  Serious: Yes (Hospitalization, Other)
  Sender: FDA-Public Use
  Company Number: DE-ANIPHARMA-2021-DE-000022

PATIENT
  Age: 63 Year
  Sex: Male

DRUGS (4)
  1. MOVIPREP [Suspect]
     Active Substance: ASCORBIC ACID\POLYETHYLENE GLYCOL 3350\POTASSIUM CHLORIDE\SODIUM ASCORBATE\SODIUM CHLORIDE\SODIUM SULFATE
     Dosage: UNKNOWN DOSE AND FREQUENCY
     Route: 065
     Dates: start: 20201216, end: 20201216
  2. NEBIVOLOL. [Suspect]
     Active Substance: NEBIVOLOL
     Dosage: 5 MG QD
     Route: 065
     Dates: start: 20201216
  3. PHENPROCOUMON [Suspect]
     Active Substance: PHENPROCOUMON
     Dosage: 3 MG QD
     Route: 065
     Dates: start: 20201216
  4. CANDESARTAN. [Suspect]
     Active Substance: CANDESARTAN
     Indication: MITRAL VALVE INCOMPETENCE
     Dosage: 4 MG QD
     Route: 048
     Dates: start: 20201216

REACTIONS (8)
  - Skin irritation [Unknown]
  - Drug hypersensitivity [Unknown]
  - Erythema [Unknown]
  - Pigmentation disorder [Unknown]
  - Pruritus [Unknown]
  - Anaphylactic shock [Recovered/Resolved]
  - Pustule [Unknown]
  - Product use in unapproved indication [Unknown]

NARRATIVE: CASE EVENT DATE: 20201216
